FAERS Safety Report 10710623 (Version 1)
Quarter: 2015Q1

REPORT INFORMATION
  Report Type: Spontaneous
  Country: US (occurrence: US)
  Receive Date: 20150114
  Receipt Date: 20150114
  Transmission Date: 20150721
  Serious: No
  Sender: FDA-Public Use
  Company Number: US-ENDO PHARMACEUTICALS INC.-ENDC20140019

PATIENT
  Age: 63 Year
  Sex: Female

DRUGS (1)
  1. ENDOCET [Suspect]
     Active Substance: ACETAMINOPHEN\OXYCODONE HYDROCHLORIDE
     Indication: PAIN
     Dosage: 10/325
     Route: 048
     Dates: start: 20140529, end: 20140530

REACTIONS (3)
  - Drug ineffective [Recovered/Resolved]
  - Psychomotor hyperactivity [Unknown]
  - Sedation [Unknown]

NARRATIVE: CASE EVENT DATE: 20140529
